FAERS Safety Report 4898229-1 (Version None)
Quarter: 2006Q1

REPORT INFORMATION
  Report Type: 
  Country: None (occurrence: None)
  Receive Date: 20060201
  Receipt Date: 20051020
  Transmission Date: 20060701
  Serious: Yes (Hospitalization, Disabling)
  Sender: FDA-Public Use
  Company Number: US-MERCK-0510USA08414

PATIENT
  Age: 57 Year
  Sex: Male
  Weight: 102 kg

DRUGS (2)
  1. VIOXX [Suspect]
     Indication: PAIN IN EXTREMITY
     Route: 048
     Dates: start: 19991117, end: 20040930
  2. VIOXX [Suspect]
     Indication: ARTHRALGIA
     Route: 048
     Dates: start: 19991117, end: 20040930

REACTIONS (38)
  - ABDOMINAL PAIN [None]
  - ABSCESS [None]
  - ABSCESS INTESTINAL [None]
  - ANASTOMOTIC STENOSIS [None]
  - ARTHRALGIA [None]
  - ASTHENIA [None]
  - ATELECTASIS [None]
  - BLOOD PRESSURE SYSTOLIC INCREASED [None]
  - BLOOD TRIGLYCERIDES INCREASED [None]
  - CEREBRAL ATROPHY [None]
  - CEREBROVASCULAR ACCIDENT [None]
  - CLOSTRIDIAL INFECTION [None]
  - CLOSTRIDIUM COLITIS [None]
  - COLONIC STENOSIS [None]
  - COORDINATION ABNORMAL [None]
  - DIVERTICULITIS [None]
  - DIVERTICULUM [None]
  - DIZZINESS POSTURAL [None]
  - DYSPNOEA [None]
  - FATIGUE [None]
  - GAIT DISTURBANCE [None]
  - HAEMORRHAGE INTRACRANIAL [None]
  - HEART RATE DECREASED [None]
  - HEMIANOPIA [None]
  - HEMIPARESIS [None]
  - HYPOAESTHESIA [None]
  - INFLAMMATION [None]
  - INTESTINAL PERFORATION [None]
  - JOINT INJURY [None]
  - LACUNAR INFARCTION [None]
  - LARGE INTESTINE PERFORATION [None]
  - LIMB INJURY [None]
  - NECK PAIN [None]
  - POSTOPERATIVE ABSCESS [None]
  - PULMONARY EMBOLISM [None]
  - RESPIRATORY FAILURE [None]
  - SPINAL DISORDER [None]
  - SURGERY [None]
